FAERS Safety Report 24564290 (Version 1)
Quarter: 2024Q4

REPORT INFORMATION
  Report Type: Other
  Country: CH (occurrence: CH)
  Receive Date: 20241030
  Receipt Date: 20241030
  Transmission Date: 20250114
  Serious: Yes (Hospitalization, Other)
  Sender: ANI
  Company Number: CH-ANIPHARMA-012662

PATIENT
  Age: 53 Year
  Sex: Male

DRUGS (10)
  1. IBUPROFEN [Suspect]
     Active Substance: IBUPROFEN
     Indication: Bursitis
  2. FUROSEMIDE [Suspect]
     Active Substance: FUROSEMIDE
     Indication: Respiratory distress
  3. Amoxicillin/clavulunic acid [Concomitant]
     Indication: Bursitis
  4. DIPYRONE [Concomitant]
     Active Substance: DIPYRONE
     Indication: Bursitis
  5. PANTOPRAZOLE [Concomitant]
     Active Substance: PANTOPRAZOLE
     Indication: Bursitis
  6. HEPARIN [Concomitant]
     Active Substance: HEPARIN SODIUM
     Indication: Bursitis
  7. TORSEMIDE [Concomitant]
     Active Substance: TORSEMIDE
     Indication: Respiratory distress
  8. CEFAZOLIN [Concomitant]
     Active Substance: CEFAZOLIN
     Indication: Pyrexia
  9. DOXYCYCLINE [Concomitant]
     Active Substance: DOXYCYCLINE
     Indication: Pyrexia
  10. ENOXAPARIN SODIUM [Concomitant]
     Active Substance: ENOXAPARIN SODIUM
     Indication: Product used for unknown indication

REACTIONS (2)
  - Drug reaction with eosinophilia and systemic symptoms [Unknown]
  - Nephropathy [Unknown]
